FAERS Safety Report 20062552 (Version 1)
Quarter: 2021Q4

REPORT INFORMATION
  Report Type: Spontaneous
  Country: US (occurrence: US)
  Receive Date: 20211112
  Receipt Date: 20211112
  Transmission Date: 20220303
  Serious: No
  Sender: FDA-Public Use
  Company Number: US-PERRIGO-20US015399

PATIENT
  Age: 32 Year
  Sex: Female

DRUGS (1)
  1. MIDAMOR [Suspect]
     Active Substance: AMILORIDE HYDROCHLORIDE
     Indication: Product used for unknown indication
     Dosage: UNKNOWN, UNKNOWN
     Route: 048
     Dates: start: 202001

REACTIONS (1)
  - Product after taste [Unknown]

NARRATIVE: CASE EVENT DATE: 20201023
